FAERS Safety Report 6224353-7 (Version None)
Quarter: 2009Q2

REPORT INFORMATION
  Report Type: 
  Country: None (occurrence: None)
  Receive Date: 20090612
  Receipt Date: 20090316
  Transmission Date: 20091009
  Serious: Yes (Other)
  Sender: FDA-Public Use
  Company Number: US-ABBOTT-09P-163-0563010-00

PATIENT
  Sex: Female

DRUGS (4)
  1. HUMIRA [Suspect]
     Indication: PSORIASIS
     Dates: start: 20060101
  2. HUMIRA [Suspect]
     Dosage: HUMIRA PEN
     Dates: end: 20090101
  3. HUMIRA [Suspect]
     Indication: DRUG USE FOR UNKNOWN INDICATION
     Dates: end: 20090101
  4. UNKNOWN MEDICATION [Concomitant]
     Indication: DRUG USE FOR UNKNOWN INDICATION

REACTIONS (1)
  - MULTIPLE SCLEROSIS [None]
